FAERS Safety Report 12559836 (Version 1)
Quarter: 2016Q3

REPORT INFORMATION
  Report Type: Spontaneous
  Country: US (occurrence: US)
  Receive Date: 20160715
  Receipt Date: 20160715
  Transmission Date: 20161109
  Serious: No
  Sender: FDA-Public Use
  Company Number: US-JNJFOC-20160616521

PATIENT
  Sex: Female
  Weight: 55.34 kg

DRUGS (5)
  1. MENS ROGAINE EXTRA STRENGTH [Suspect]
     Active Substance: MINOXIDIL
     Route: 061
  2. MENS ROGAINE EXTRA STRENGTH [Suspect]
     Active Substance: MINOXIDIL
     Indication: PRODUCT USED FOR UNKNOWN INDICATION
     Dosage: FULL CAP
     Route: 061
     Dates: start: 20160525, end: 20160609
  3. RETIN-A [Concomitant]
     Active Substance: TRETINOIN
     Indication: ACNE
     Dosage: EVRY TO EVRY OTHER DAY (1 YEAR)
     Route: 065
  4. RETIN-A [Concomitant]
     Active Substance: TRETINOIN
     Indication: SKIN WRINKLING
     Dosage: EVRY TO EVRY OTHER DAY (1 YEAR)
     Route: 065
  5. ACYCLOVIR. [Concomitant]
     Active Substance: ACYCLOVIR
     Indication: HERPES VIRUS INFECTION
     Dosage: 2 YEARS
     Route: 065

REACTIONS (3)
  - Product use issue [Not Recovered/Not Resolved]
  - Off label use [Not Recovered/Not Resolved]
  - Alopecia [Not Recovered/Not Resolved]
